FAERS Safety Report 24029889 (Version 1)
Quarter: 2024Q2

REPORT INFORMATION
  Report Type: Spontaneous
  Country: US (occurrence: None)
  Receive Date: 20240628
  Receipt Date: 20240628
  Transmission Date: 20240716
  Serious: Yes (Hospitalization)
  Sender: FDA-Public Use
  Company Number: None

PATIENT
  Age: 74 Year
  Sex: Male

DRUGS (1)
  1. TECLISTAMAB-CQYV [Suspect]
     Active Substance: TECLISTAMAB-CQYV
     Dosage: 1.5 MG/KG ONCE SUBCUTANEOUS ?
     Route: 058

REACTIONS (11)
  - Vomiting [None]
  - Cough [None]
  - Fatigue [None]
  - Diarrhoea [None]
  - Weight decreased [None]
  - Hyponatraemia [None]
  - Dehydration [None]
  - Cytokine release syndrome [None]
  - Pseudomonas test positive [None]
  - Septic shock [None]
  - Escherichia test positive [None]

NARRATIVE: CASE EVENT DATE: 20240510
